FAERS Safety Report 10749035 (Version 1)
Quarter: 2015Q1

REPORT INFORMATION
  Report Type: Spontaneous
  Country: US (occurrence: None)
  Receive Date: 20150128
  Receipt Date: 20150128
  Transmission Date: 20150721
  Serious: No
  Sender: FDA-Public Use
  Company Number: None

PATIENT
  Age: 69 Year
  Sex: Male
  Weight: 98.88 kg

DRUGS (1)
  1. VIRT-VITE [Suspect]
     Active Substance: CYANOCOBALAMIN\FOLIC ACID\PYRIDOXINE HYDROCHLORIDE
     Dosage: 1 PILL ONCE DAILY
     Route: 048

REACTIONS (3)
  - Obstructive airways disorder [None]
  - Swollen tongue [None]
  - Lip swelling [None]

NARRATIVE: CASE EVENT DATE: 20150124
